FAERS Safety Report 24902591 (Version 1)
Quarter: 2025Q1

REPORT INFORMATION
  Report Type: Spontaneous
  Country: SI (occurrence: SI)
  Receive Date: 20250130
  Receipt Date: 20250130
  Transmission Date: 20250409
  Serious: Yes (Disabling)
  Sender: TEVA
  Company Number: None

PATIENT
  Age: 45 Year
  Sex: Female
  Weight: 60 kg

DRUGS (3)
  1. QUETIAPINE [Suspect]
     Active Substance: QUETIAPINE
     Indication: Schizophrenia
     Dosage: 50MG IN THE EVENINGS 1X PER DAY; BATCH/LOT NUMBER: H/11/02030/007;?LOQUEN SR
     Route: 048
     Dates: start: 20130913
  2. ZELDOX [Suspect]
     Active Substance: ZIPRASIDONE
     Indication: Schizophrenia
     Dosage: 40 MG 2X PER DAY; BATCH/LOT NUMBER: H/03/01699/002,
     Route: 048
     Dates: start: 20130913
  3. LYRICA [Suspect]
     Active Substance: PREGABALIN
     Indication: Schizophrenia
     Dosage: 75 MG 2X PER DAY; BATCH/LOT NUMBER: EU/1/04/279/012
     Route: 048
     Dates: start: 20130913

REACTIONS (6)
  - Eructation [Not Recovered/Not Resolved]
  - Eructation [Not Recovered/Not Resolved]
  - Eyelid function disorder [Not Recovered/Not Resolved]
  - Speech disorder [Not Recovered/Not Resolved]
  - Poor quality sleep [Not Recovered/Not Resolved]
  - Trismus [Not Recovered/Not Resolved]

NARRATIVE: CASE EVENT DATE: 20200520
